FAERS Safety Report 21537087 (Version 1)
Quarter: 2022Q4

REPORT INFORMATION
  Report Type: Spontaneous
  Country: US (occurrence: None)
  Receive Date: 20221101
  Receipt Date: 20221101
  Transmission Date: 20230113
  Serious: Yes (Disabling, Other)
  Sender: FDA-Public Use
  Company Number: None

PATIENT
  Age: 61 Year
  Sex: Male
  Weight: 92.25 kg

DRUGS (2)
  1. TRULICITY [Suspect]
     Active Substance: DULAGLUTIDE
     Indication: Type 2 diabetes mellitus
     Dosage: OTHER QUANTITY : 4.5 INJECTION(S);?OTHER FREQUENCY : ONCE A WEEK;?
     Route: 030
  2. Bunch [Concomitant]

REACTIONS (5)
  - Therapy interrupted [None]
  - Arthralgia [None]
  - Headache [None]
  - Feeling abnormal [None]
  - Product availability issue [None]

NARRATIVE: CASE EVENT DATE: 20221101
